FAERS Safety Report 8170828-3 (Version None)
Quarter: 2012Q1

REPORT INFORMATION
  Report Type: 
  Country: None (occurrence: None)
  Receive Date: 20120104
  Receipt Date: 20111014
  Transmission Date: 20120608
  Serious: No
  Sender: FDA-Public Use
  Company Number: 2011HGS-002642

PATIENT
  Age: 48 Year
  Sex: Female
  Weight: 108.8633 kg

DRUGS (8)
  1. PLAQUENIL (HYDROXYCHLOROQUINE SULFATE) (HYDROXYCHLOROQUINE SULFATE) [Concomitant]
  2. COUMADIN [Concomitant]
  3. PREDNISONE [Concomitant]
  4. SYNTHROID (LEVOTHYROXINE SODIUM) (LEVOTHYROXINE SODIUM) [Concomitant]
  5. BENLYSTA [Suspect]
     Indication: SYSTEMIC LUPUS ERYTHEMATOSUS
     Dosage: 1 IN 28 D, INTRAVENOUS DRIP
     Route: 041
     Dates: start: 20110908
  6. OMEPRAZOLE [Concomitant]
  7. LOVASTATIN [Concomitant]
  8. EFFEXOR (VENLAFAXINE HYDROCHLORIDE) (VENLAFAXINE HYDROCHLORIDE) [Concomitant]

REACTIONS (2)
  - NAUSEA [None]
  - FATIGUE [None]
